FAERS Safety Report 4338271-2 (Version None)
Quarter: 2004Q2

REPORT INFORMATION
  Report Type: 
  Country: None (occurrence: None)
  Receive Date: 20040409
  Receipt Date: 20040329
  Transmission Date: 20050107
  Serious: Yes (Death)
  Sender: FDA-Public Use
  Company Number: GBWYE674930MAR04

PATIENT
  Age: 84 Year
  Sex: Female

DRUGS (3)
  1. ADVIL [Suspect]
     Indication: BACK PAIN
     Dosage: 1600 MG 1X PER 1 DAY, ORAL
     Route: 048
     Dates: start: 20040314, end: 20040319
  2. SOLPADOL (CODEINE PHOSPHATE/PARACETAMOL) [Concomitant]
  3. SALBUTAMOL (SALBUTAMOL) [Concomitant]

REACTIONS (3)
  - BLOOD POTASSIUM INCREASED [None]
  - OVERDOSE [None]
  - RENAL FAILURE [None]
